FAERS Safety Report 10419359 (Version 1)
Quarter: 2014Q3

REPORT INFORMATION
  Report Type: Spontaneous
  Country: US (occurrence: None)
  Receive Date: 20140701
  Receipt Date: 20140701
  Transmission Date: 20150326
  Serious: No
  Sender: FDA-Public Use
  Company Number: 1000060487

PATIENT
  Age: 78 Year
  Sex: Male

DRUGS (7)
  1. LINZESS [Suspect]
     Active Substance: LINACLOTIDE
     Indication: CONSTIPATION
     Dates: start: 2014
  2. ASPIRIN (ACETYLSALICYLIC ACID [Concomitant]
  3. NAPROXEN (NAPROXEN) [Concomitant]
     Active Substance: NAPROXEN
  4. MVI (VITAMINS NOS) [Concomitant]
  5. FINASTERIDE (FINASTERIDE) [Concomitant]
     Active Substance: FINASTERIDE
  6. DOXAZOSIN [Concomitant]
     Active Substance: DOXAZOSIN\DOXAZOSIN MESYLATE
  7. HYDROCHLOROTHIAZIDE (HYDROCHLOROTHIAZIDE) [Concomitant]
     Active Substance: HYDROCHLOROTHIAZIDE

REACTIONS (2)
  - Expired product administered [None]
  - Diarrhoea [None]

NARRATIVE: CASE EVENT DATE: 2014
